FAERS Safety Report 25950353 (Version 1)
Quarter: 2025Q4

REPORT INFORMATION
  Report Type: Spontaneous
  Country: PH (occurrence: PH)
  Receive Date: 20251023
  Receipt Date: 20251023
  Transmission Date: 20260118
  Serious: Yes (Death, Other)
  Sender: ABBVIE
  Company Number: PH-RICHTER-2025-GR-013478

PATIENT
  Age: 77 Year
  Sex: Male

DRUGS (1)
  1. CARIPRAZINE [Suspect]
     Active Substance: CARIPRAZINE
     Indication: Product used for unknown indication
     Dosage: DOSE: 1.5 MILLIGRAMS
     Route: 048
     Dates: start: 20250620

REACTIONS (2)
  - Urinary tract infection [Fatal]
  - Septic shock [Fatal]

NARRATIVE: CASE EVENT DATE: 20250101
